FAERS Safety Report 7269207-2 (Version None)
Quarter: 2011Q1

REPORT INFORMATION
  Report Type: 
  Country: None (occurrence: None)
  Receive Date: 20110202
  Receipt Date: 20110118
  Transmission Date: 20110831
  Serious: Yes (Hospitalization, Disabling)
  Sender: FDA-Public Use
  Company Number: US-ELI_LILLY_AND_COMPANY-US201011001425

PATIENT
  Sex: Female

DRUGS (4)
  1. EVISTA [Suspect]
     Indication: OSTEOPOROSIS
     Dosage: 60 MG, DAILY (1/D)
  2. VIACTIV /00751501/ [Concomitant]
     Dosage: UNK, DAILY (1/D)
  3. VITAMIN D [Concomitant]
     Dosage: UNK, DAILY (1/D)
  4. CALCIUM [Concomitant]
     Dosage: UNK, DAILY (1/D)

REACTIONS (8)
  - WEIGHT BEARING DIFFICULTY [None]
  - TIBIA FRACTURE [None]
  - MUSCLE SPASMS [None]
  - NERVE INJURY [None]
  - ACCIDENT [None]
  - FIBULA FRACTURE [None]
  - NO THERAPEUTIC RESPONSE [None]
  - GAIT DISTURBANCE [None]
